FAERS Safety Report 7428036-7 (Version None)
Quarter: 2011Q2

REPORT INFORMATION
  Report Type: 
  Country: None (occurrence: None)
  Receive Date: 20110421
  Receipt Date: 20110413
  Transmission Date: 20111010
  Serious: Yes (Hospitalization)
  Sender: FDA-Public Use
  Company Number: US-BIOGENIDEC-2011BI010774

PATIENT
  Age: 50 Year
  Sex: Female

DRUGS (1)
  1. TYSABRI [Suspect]
     Indication: MULTIPLE SCLEROSIS
     Route: 042
     Dates: start: 20100809

REACTIONS (6)
  - OEDEMA PERIPHERAL [None]
  - PRURITUS [None]
  - MULTIPLE SCLEROSIS RELAPSE [None]
  - CELLULITIS [None]
  - URTICARIA [None]
  - RASH PAPULAR [None]
